FAERS Safety Report 7543215-6 (Version None)
Quarter: 2011Q2

REPORT INFORMATION
  Report Type: 
  Country: None (occurrence: None)
  Receive Date: 20110613
  Receipt Date: 20110602
  Transmission Date: 20111010
  Serious: No
  Sender: FDA-Public Use
  Company Number: US-MERCK-1105USA03195

PATIENT
  Sex: Female

DRUGS (13)
  1. CYTOXAN [Concomitant]
     Route: 065
  2. EMEND [Suspect]
     Dosage: FIRST CYCLE
     Route: 048
     Dates: start: 20110217
  3. LISINOPRIL [Concomitant]
     Route: 065
  4. EMEND [Suspect]
     Dosage: FOURTH CYCLE
     Route: 065
     Dates: start: 20110424
  5. LOPRESSOR [Concomitant]
     Route: 065
  6. EMEND [Suspect]
     Route: 048
     Dates: start: 20110520, end: 20110520
  7. EMEND [Suspect]
     Dosage: SECOND CYCLE
     Route: 048
     Dates: start: 20110310
  8. TAXOTERE [Concomitant]
     Route: 065
  9. DECADRON [Suspect]
     Route: 048
     Dates: start: 20110330, end: 20110331
  10. CRESTOR [Concomitant]
     Route: 065
  11. EMEND [Suspect]
     Indication: PROPHYLAXIS OF NAUSEA AND VOMITING
     Dosage: THIRD CYCLE
     Route: 048
     Dates: start: 20110331
  12. EMEND [Suspect]
     Dosage: FIFTH CYCLE
     Route: 048
     Dates: start: 20110519, end: 20110519
  13. DECADRON [Suspect]
     Route: 042
     Dates: start: 20110519

REACTIONS (1)
  - RASH [None]
